FAERS Safety Report 4312042-5 (Version None)
Quarter: 2004Q1

REPORT INFORMATION
  Report Type: 
  Country: None (occurrence: None)
  Receive Date: 20040305
  Receipt Date: 20020218
  Transmission Date: 20041129
  Serious: Yes (Hospitalization, Other)
  Sender: FDA-Public Use
  Company Number: PHEH2002US01847

PATIENT
  Age: 43 Year
  Sex: Female

DRUGS (7)
  1. LAMISIL [Suspect]
     Indication: FUNGAL INFECTION
     Dosage: 250 MG, QD
     Route: 048
     Dates: start: 20010201
  2. NOVOLIN 70/30 [Concomitant]
  3. PREMARIN [Concomitant]
  4. FLONASE [Concomitant]
  5. IOPIDINE [Concomitant]
  6. XALATAN [Concomitant]
  7. LESCOL [Concomitant]

REACTIONS (7)
  - CARDIAC FAILURE CONGESTIVE [None]
  - CARDIAC VALVE DISEASE [None]
  - CARDIOMEGALY [None]
  - CARDIOMYOPATHY [None]
  - DYSPNOEA [None]
  - HYPERTENSION [None]
  - RENAL FAILURE CHRONIC [None]
